FAERS Safety Report 5519492-X (Version None)
Quarter: 2007Q4

REPORT INFORMATION
  Report Type: 
  Country: None (occurrence: None)
  Receive Date: 20071116
  Receipt Date: 20071103
  Transmission Date: 20080405
  Serious: Yes (Hospitalization)
  Sender: FDA-Public Use
  Company Number: TR-ELI_LILLY_AND_COMPANY-TR200711001826

PATIENT
  Age: 55 Year
  Sex: Female
  Weight: 80 kg

DRUGS (4)
  1. HUMULIN N [Suspect]
     Dosage: UNK, UNKNOWN
     Route: 058
     Dates: start: 20040101
  2. HUMULIN 70/30 [Suspect]
     Dosage: UNK, UNKNOWN
     Route: 058
     Dates: start: 20040101
  3. HUMALOG MIX 75/25 [Suspect]
     Dosage: 10 UNITS/MORNING AND 20 UNITS/EVENING
     Route: 058
  4. HUMALOG MIX 75/25 [Suspect]
     Dosage: 20 U, EACH EVENING
     Route: 058

REACTIONS (4)
  - BLOOD GLUCOSE INCREASED [None]
  - DIABETES MELLITUS INADEQUATE CONTROL [None]
  - HOSPITALISATION [None]
  - PAIN IN EXTREMITY [None]
